FAERS Safety Report 6643219-1 (Version None)
Quarter: 2010Q1

REPORT INFORMATION
  Report Type: 
  Country: None (occurrence: None)
  Receive Date: 20100319
  Receipt Date: 20100316
  Transmission Date: 20100710
  Serious: Yes (Hospitalization)
  Sender: FDA-Public Use
  Company Number: PHHO2010NL04060

PATIENT
  Sex: Male
  Weight: 92.5 kg

DRUGS (2)
  1. CERTICAN [Suspect]
     Indication: LIVER TRANSPLANT
     Dosage: 4 MG
     Route: 048
     Dates: start: 20091215
  2. TACROLIMUS [Suspect]
     Indication: LIVER TRANSPLANT
     Dosage: 2 MG
     Route: 048
     Dates: start: 20091215

REACTIONS (1)
  - EPSTEIN-BARR VIRUS ASSOCIATED LYMPHOPROLIFERATIVE DISORDER [None]
